FAERS Safety Report 13855981 (Version 24)
Quarter: 2018Q2

REPORT INFORMATION
  Report Type: Report from Study
  Country: IT (occurrence: IT)
  Receive Date: 20170810
  Receipt Date: 20180622
  Transmission Date: 20180711
  Serious: Yes (Other)
  Sender: FDA-Public Use
  Company Number: IT-VERTEX PHARMACEUTICALS-2017-003366

PATIENT
  Age: 25 Year
  Sex: Female
  Weight: 59 kg

DRUGS (2)
  1. VX-661/VX-770 [Suspect]
     Active Substance: INVESTIGATIONAL PRODUCT
     Indication: CYSTIC FIBROSIS
     Dosage: 100/150MG TEZ/IVA AM; 150MG IVA PM
     Route: 048
     Dates: start: 20160728, end: 20170414
  2. TEA, GREEN [Concomitant]
     Active Substance: GREEN TEA LEAF
     Dosage: NO MORE THAN TWO CUPS TWICE A WEEK

REACTIONS (2)
  - Hepatic necrosis [Not Recovered/Not Resolved]
  - Liver function test increased [Recovered/Resolved]

NARRATIVE: CASE EVENT DATE: 20170623
